FAERS Safety Report 5787041-7 (Version None)
Quarter: 2008Q2

REPORT INFORMATION
  Report Type: 
  Country: None (occurrence: None)
  Receive Date: 20080625
  Receipt Date: 20080612
  Transmission Date: 20081010
  Serious: Yes (Death)
  Sender: FDA-Public Use
  Company Number: IT-ELI_LILLY_AND_COMPANY-IT200806001987

PATIENT
  Age: 40 Year
  Sex: Female

DRUGS (5)
  1. ZYPREXA [Suspect]
     Indication: BIPOLAR I DISORDER
     Dosage: UNK, UNK
     Dates: start: 20030101
  2. PROZAC [Suspect]
     Indication: BIPOLAR I DISORDER
     Dosage: 20 MG, UNK
     Dates: start: 20030101
  3. PROZAC [Suspect]
     Dosage: 40 MG, UNK
  4. PROZAC [Suspect]
     Dosage: 20 MG, UNK
     Dates: end: 20030101
  5. EFFEXOR [Concomitant]
     Indication: BIPOLAR I DISORDER
     Dosage: UNK, UNK
     Dates: start: 20030101

REACTIONS (2)
  - COMPLETED SUICIDE [None]
  - DRUG INEFFECTIVE [None]
